FAERS Safety Report 24845474 (Version 5)
Quarter: 2025Q1

REPORT INFORMATION
  Report Type: Spontaneous
  Country: US (occurrence: US)
  Receive Date: 20250115
  Receipt Date: 20250318
  Transmission Date: 20250409
  Serious: Yes (Death)
  Sender: PFIZER
  Company Number: US-PFIZER INC-PV202300015310

PATIENT
  Age: 71 Year
  Sex: Male
  Weight: 90.72 kg

DRUGS (25)
  1. TIKOSYN [Suspect]
     Active Substance: DOFETILIDE
     Indication: Atrial fibrillation
     Dosage: 500 UG, 2X/DAY
     Route: 048
     Dates: start: 20211004, end: 20241229
  2. ACETAZOLAMIDE [Concomitant]
     Active Substance: ACETAZOLAMIDE
     Dosage: 250 MG, 2X/DAY
     Route: 048
  3. ALBUTEROL SULFATE [Concomitant]
     Active Substance: ALBUTEROL SULFATE
  4. ATORVASTATIN [Concomitant]
     Active Substance: ATORVASTATIN
     Dosage: (TAKE 1 TABLET EVERY DAY BY ORAL ROUTE AT BEDTIME)
     Route: 048
  5. BUDESONIDE [Concomitant]
     Active Substance: BUDESONIDE
     Dosage: (INHALE 1 AMPULE (2ML) TWICE A DAY BY NEBULIZATION ROUTE)/ 1 MG/ 2ML
  6. FUROSEMIDE [Concomitant]
     Active Substance: FUROSEMIDE
     Dosage: (TAKE 2 TABLETS BY MOUTH EVERY DAY)
     Route: 048
  7. LANTUS SOLOSTAR [Concomitant]
     Active Substance: INSULIN GLARGINE
     Dosage: (44 UNITS SC AT HS)/ U-100 INSULIN
     Route: 058
  8. LANTUS SOLOSTAR [Concomitant]
     Active Substance: INSULIN GLARGINE
     Dosage: 10 IU, DAILY/ U-100 INSULIN 100 UNIT/ML (3 ML)
  9. LOSARTAN [Concomitant]
     Active Substance: LOSARTAN
     Dosage: (TAKE 1 TABLET TWICE A DAY BY ORAL ROUTE)
     Route: 048
  10. METFORMIN HYDROCHLORIDE [Concomitant]
     Active Substance: METFORMIN HYDROCHLORIDE
     Dosage: (TAKE 1 TABLET DAILY)
  11. OZEMPIC [Concomitant]
     Active Substance: SEMAGLUTIDE
     Route: 058
  12. OZEMPIC [Concomitant]
     Active Substance: SEMAGLUTIDE
     Route: 058
  13. PANTOPRAZOLE [Concomitant]
     Active Substance: PANTOPRAZOLE
     Dosage: (TAKE 1 TABLET EVERY DAY BY ORAL ROUTE)
     Route: 048
  14. PAXLOVID [Concomitant]
     Active Substance: NIRMATRELVIR\RITONAVIR
     Dosage: TAKE 2 TABLETS BY MOUTH TWICE A DAY AS DIRECTED FOR 5 DAYS/150 MG TABLET-100 MG TABLETS
     Route: 048
  15. PERFOROMIST [Concomitant]
     Active Substance: FORMOTEROL FUMARATE DIHYDRATE
     Dosage: (INHALE 2 MILLILITRES (1 VIAL) VIA NEBULIZER TWICE A DAY)
  16. POTASSIUM CHLORIDE [Concomitant]
     Active Substance: POTASSIUM CHLORIDE
     Dosage: TAKE 2 TABLETS BY MOUTH EVERY DAY AS DIRECTED FOR 90 DAYS/ 10 MEQ TABLET
     Route: 048
  17. PREDNISONE [Concomitant]
     Active Substance: PREDNISONE
     Dosage: (TAKE 1 TABLET EVERYDAY BY ORAL ROUTE)
     Route: 048
  18. PREDNISONE [Concomitant]
     Active Substance: PREDNISONE
     Dosage: (TAKE 1 TABLET EVERYDAY BY ORAL ROUTE FOR 30 DAYS)
     Route: 048
  19. TAMSULOSIN [Concomitant]
     Active Substance: TAMSULOSIN
     Dosage: (TAKE 1 CAPSULE EVERY DAY BY ORAL ROUTE AT BEDTIME)
     Route: 048
  20. TRAMADOL [Concomitant]
     Active Substance: TRAMADOL
     Route: 048
  21. TRELEGY ELLIPTA [Concomitant]
     Active Substance: FLUTICASONE FUROATE\UMECLIDINIUM BROMIDE\VILANTEROL TRIFENATATE
     Dosage: INHALE 1 PUFF EVERY DAY BY INHALATION ROUTE/ 100MCG-62.5 MCG-25 MCG POWDER FOR INHALATION
  22. TYLENOL [Concomitant]
     Active Substance: ACETAMINOPHEN
  23. VITAMIN C [Concomitant]
     Active Substance: ASCORBIC ACID
     Dosage: UNK, DAILY
  24. XARELTO [Concomitant]
     Active Substance: RIVAROXABAN
     Dosage: (TAKE 1 TABLET BY MOUTH EVERY DAY)
     Route: 048
  25. YUPELRI [Concomitant]
     Active Substance: REVEFENACIN

REACTIONS (2)
  - Cardiac arrest [Fatal]
  - Wrong strength [Unknown]
